FAERS Safety Report 8144893-3 (Version None)
Quarter: 2012Q1

REPORT INFORMATION
  Report Type: 
  Country: None (occurrence: None)
  Receive Date: 20120217
  Receipt Date: 20120210
  Transmission Date: 20120608
  Serious: Yes (Other)
  Sender: FDA-Public Use
  Company Number: GB-GLAXOSMITHKLINE-B0781689A

PATIENT
  Sex: Female

DRUGS (2)
  1. XELODA [Concomitant]
  2. LAPATINIB [Suspect]
     Indication: BREAST CANCER
     Route: 065

REACTIONS (1)
  - CATARACT [None]
